FAERS Safety Report 22244404 (Version 1)
Quarter: 2023Q2

REPORT INFORMATION
  Report Type: Spontaneous
  Country: US (occurrence: US)
  Receive Date: 20230424
  Receipt Date: 20230424
  Transmission Date: 20230722
  Serious: No
  Sender: FDA-Public Use
  Company Number: US-SA-SAC20230303000196

PATIENT
  Age: 65 Year
  Sex: Female
  Weight: 61.6 kg

DRUGS (11)
  1. DUPIXENT [Suspect]
     Active Substance: DUPILUMAB
     Indication: Dermatitis allergic
     Dosage: 600 MG, 1X
     Route: 058
     Dates: start: 20230223, end: 20230223
  2. DUPIXENT [Suspect]
     Active Substance: DUPILUMAB
     Dosage: 300 MG, QOW
     Route: 058
     Dates: start: 2023
  3. CLOBETASOL [Concomitant]
     Active Substance: CLOBETASOL
  4. CLOBETASOL [Concomitant]
     Active Substance: CLOBETASOL
  5. LEVOTHYROXINE SODIUM [Concomitant]
     Active Substance: LEVOTHYROXINE SODIUM
  6. LEXAPRO [Concomitant]
     Active Substance: ESCITALOPRAM OXALATE
  7. PREDNISONE [Concomitant]
     Active Substance: PREDNISONE
  8. BUDESONIDE [Concomitant]
     Active Substance: BUDESONIDE
  9. CANNABIS SATIVA SUBSP. INDICA TOP [Concomitant]
     Active Substance: CANNABIS SATIVA SUBSP. INDICA TOP
  10. LEVOTHYROXINE [Concomitant]
     Active Substance: LEVOTHYROXINE
  11. GINKGO [Concomitant]
     Active Substance: GINKGO

REACTIONS (4)
  - Feeling hot [Unknown]
  - Rash erythematous [Unknown]
  - Rash pruritic [Recovered/Resolved]
  - Injection site pain [Unknown]

NARRATIVE: CASE EVENT DATE: 20230223
